FAERS Safety Report 8459642-9 (Version None)
Quarter: 2012Q2

REPORT INFORMATION
  Report Type: 
  Country: None (occurrence: None)
  Receive Date: 20120622
  Receipt Date: 20120620
  Transmission Date: 20120825
  Serious: Yes (Hospitalization)
  Sender: FDA-Public Use
  Company Number: SI-GLAXOSMITHKLINE-B0808592A

PATIENT
  Sex: Male
  Weight: 90 kg

DRUGS (5)
  1. HALDOL [Concomitant]
     Dosage: 15MG PER DAY
     Route: 065
  2. POTIGA [Suspect]
     Indication: PARTIAL SEIZURES WITH SECONDARY GENERALISATION
     Route: 065
     Dates: start: 20120115, end: 20120615
  3. DEPAKENE [Concomitant]
     Indication: PARTIAL SEIZURES WITH SECONDARY GENERALISATION
     Dosage: 1000MG PER DAY
     Route: 065
  4. AKINETON [Concomitant]
     Dosage: 2TAB PER DAY
     Route: 065
  5. TEGRETOL [Concomitant]
     Indication: PARTIAL SEIZURES WITH SECONDARY GENERALISATION
     Dosage: 1000MG PER DAY
     Route: 065

REACTIONS (1)
  - DIARRHOEA [None]
